FAERS Safety Report 4311895-4 (Version None)
Quarter: 2004Q1

REPORT INFORMATION
  Report Type: 
  Country: None (occurrence: None)
  Receive Date: 20040303
  Receipt Date: 20040223
  Transmission Date: 20041129
  Serious: Yes (Other)
  Sender: FDA-Public Use
  Company Number: 2004004455

PATIENT
  Age: 53 Year
  Sex: Male

DRUGS (7)
  1. PHENYTOIN SODIUM [Suspect]
     Indication: CONVULSION
     Dosage: 300 MG (DAILY), ORAL
     Route: 048
     Dates: start: 20031001
  2. NIFEDIPINE [Concomitant]
  3. ATENOLOL [Concomitant]
  4. ACETYLSALICYLIC (ACETYLSALICYLIC ACID) [Concomitant]
  5. GARLIC (GARLIC) [Concomitant]
  6. BENDROFLUMETHIAZIDE (BENDROFLUMETHIAZIDE) [Concomitant]
  7. VALPROATE SODIUM [Concomitant]

REACTIONS (2)
  - FOOD INTERACTION [None]
  - GRAND MAL CONVULSION [None]
